FAERS Safety Report 6092365-2 (Version None)
Quarter: 2009Q1

REPORT INFORMATION
  Report Type: 
  Country: None (occurrence: None)
  Receive Date: 20090225
  Receipt Date: 20090218
  Transmission Date: 20090719
  Serious: Yes (Other)
  Sender: FDA-Public Use
  Company Number: JP-AVENTIS-200910472JP

PATIENT
  Age: 86 Year
  Sex: Female

DRUGS (5)
  1. FUROSEMIDE [Suspect]
     Dates: start: 20080101
  2. BAKUMONDOUTO [Suspect]
     Dates: start: 20050101
  3. SHAKUYAKUKANZOUTOU [Suspect]
     Dates: start: 20080101
  4. SHAKUYAKUKANZOUTOU [Suspect]
     Dates: start: 20080101
  5. ANTIHYPERTENSIVES [Concomitant]

REACTIONS (2)
  - HYPOKALAEMIA [None]
  - PSEUDOALDOSTERONISM [None]
